FAERS Safety Report 9340513 (Version 1)
Quarter: 2013Q2

REPORT INFORMATION
  Report Type: Spontaneous
  Country: US (occurrence: None)
  Receive Date: 20130610
  Receipt Date: 20130610
  Transmission Date: 20140414
  Serious: Yes (Life-Threatening, Other)
  Sender: FDA-Public Use
  Company Number: None

PATIENT
  Age: 55 Year
  Sex: Female
  Weight: 72.58 kg

DRUGS (6)
  1. DIAZEPAM [Suspect]
     Indication: PANIC DISORDER
     Dosage: 1 1/2 X 3  BY MOUTH
     Route: 048
     Dates: start: 20130115
  2. DIAZEPAM [Suspect]
     Indication: POST-TRAUMATIC STRESS DISORDER
     Dosage: 1 1/2 X 3  BY MOUTH
     Route: 048
     Dates: start: 20130115
  3. CELEXA [Concomitant]
  4. OMEPRAZOLE [Concomitant]
  5. FISH OIL [Concomitant]
  6. FLAX SEED OIL [Concomitant]

REACTIONS (6)
  - Drug effect decreased [None]
  - Product substitution issue [None]
  - Anxiety [None]
  - Sleep disorder [None]
  - Nervousness [None]
  - Quality of life decreased [None]
